FAERS Safety Report 4500178-5 (Version None)
Quarter: 2004Q3

REPORT INFORMATION
  Report Type: 
  Country: None (occurrence: None)
  Receive Date: 20040927
  Receipt Date: 20040715
  Transmission Date: 20050211
  Serious: No
  Sender: FDA-Public Use
  Company Number: USA040772778

PATIENT
  Age: 17 Year
  Sex: Female
  Weight: 82 kg

DRUGS (3)
  1. STRATTERA [Suspect]
     Indication: ATTENTION DEFICIT/HYPERACTIVITY DISORDER
     Dosage: 25 MG/1 DAY
     Dates: start: 20040603
  2. WELLBUTRIN (BUPROPION HYDROCHORIDE) [Concomitant]
  3. DAILY VITAMINS [Concomitant]

REACTIONS (8)
  - ANGER [None]
  - ANOREXIA [None]
  - DECREASED APPETITE [None]
  - EMOTIONAL DISTRESS [None]
  - IMPULSIVE BEHAVIOUR [None]
  - IRRITABILITY [None]
  - TEARFULNESS [None]
  - WEIGHT DECREASED [None]
